FAERS Safety Report 4462099-6 (Version None)
Quarter: 2004Q3

REPORT INFORMATION
  Report Type: 
  Country: None (occurrence: None)
  Receive Date: 20040929
  Receipt Date: 20040901
  Transmission Date: 20050211
  Serious: Yes (Other)
  Sender: FDA-Public Use
  Company Number: DE-ABBOTT-04P-062-0272234-00

PATIENT
  Sex: Male
  Weight: 80 kg

DRUGS (7)
  1. HUMIRA [Suspect]
     Indication: RHEUMATOID ARTHRITIS
     Route: 058
     Dates: start: 20040629
  2. PREDNI-M [Concomitant]
     Indication: DRUG USE FOR UNKNOWN INDICATION
  3. TRAMAL UNO [Concomitant]
     Indication: DRUG USE FOR UNKNOWN INDICATION
  4. VOLTAREN RESINATE [Concomitant]
     Indication: DRUG USE FOR UNKNOWN INDICATION
  5. AZULFIDINE RA [Concomitant]
     Indication: DRUG USE FOR UNKNOWN INDICATION
  6. LEFLUNOMIDE [Concomitant]
     Indication: DRUG USE FOR UNKNOWN INDICATION
     Dates: end: 20040628
  7. METOPROLOL [Concomitant]
     Indication: HYPERTENSION

REACTIONS (3)
  - CONDITION AGGRAVATED [None]
  - LOCALISED OSTEOARTHRITIS [None]
  - OSTEONECROSIS [None]
